FAERS Safety Report 4419792-0 (Version None)
Quarter: 2004Q3

REPORT INFORMATION
  Report Type: 
  Country: None (occurrence: None)
  Receive Date: 20040809
  Receipt Date: 20040310
  Transmission Date: 20050211
  Serious: No
  Sender: FDA-Public Use
  Company Number: US-GLAXOSMITHKLINE-A0502035A

PATIENT
  Sex: Female

DRUGS (1)
  1. PAXIL [Suspect]
     Indication: ANXIETY
     Dosage: 10MG IN THE MORNING
     Route: 048
     Dates: start: 20030901

REACTIONS (4)
  - INSOMNIA [None]
  - MALAISE [None]
  - SENSATION OF HEAVINESS [None]
  - SOMNOLENCE [None]
